FAERS Safety Report 8476020-7 (Version None)
Quarter: 2012Q2

REPORT INFORMATION
  Report Type: 
  Country: None (occurrence: None)
  Receive Date: 20120628
  Receipt Date: 20120404
  Transmission Date: 20120825
  Serious: Yes (Hospitalization)
  Sender: FDA-Public Use
  Company Number: AU-CELGENEUS-008-50794-11090390

PATIENT
  Sex: Female
  Weight: 46 kg

DRUGS (9)
  1. VIDAZA [Suspect]
     Dosage: 75 MILLIGRAM/SQ. METER
     Route: 065
     Dates: start: 20110718
  2. PANOBINOSTAT [Suspect]
     Dosage: 30 MILLIGRAM
     Route: 065
     Dates: start: 20110826, end: 20110905
  3. METOCLOPRAMIDE [Concomitant]
     Indication: NAUSEA
     Route: 048
  4. VIDAZA [Suspect]
     Dosage: 75 MILLIGRAM/SQ. METER
     Route: 065
     Dates: start: 20110822, end: 20110905
  5. PANOBINOSTAT [Suspect]
     Dosage: 30 MILLIGRAM
     Route: 065
     Dates: start: 20110909
  6. CHOLECALCIFEROL [Concomitant]
     Route: 065
  7. PANTOPRAZOLE [Concomitant]
     Route: 048
  8. VIDAZA [Suspect]
     Dosage: 75 MILLIGRAM/SQ. METER
     Route: 065
     Dates: start: 20110919
  9. PANOBINOSTAT [Suspect]
     Dosage: 30 MILLIGRAM
     Route: 065
     Dates: start: 20110722

REACTIONS (1)
  - OESOPHAGEAL CANDIDIASIS [None]
